FAERS Safety Report 5735874-5 (Version None)
Quarter: 2008Q2

REPORT INFORMATION
  Report Type: 
  Country: None (occurrence: None)
  Receive Date: 20080513
  Receipt Date: 20080505
  Transmission Date: 20081010
  Serious: Yes (Other)
  Sender: FDA-Public Use
  Company Number: US-ELI_LILLY_AND_COMPANY-US200804000223

PATIENT
  Sex: Female
  Weight: 73 kg

DRUGS (2)
  1. XIGRIS [Suspect]
     Indication: SEPSIS
     Dosage: 24 UG, OTHER;8.7ML/HOUR
     Dates: start: 20080324, end: 20080327
  2. HEPARIN SODIUM [Concomitant]
     Indication: CATHETER RELATED COMPLICATION
     Dosage: 5000 U/ML, OTHER

REACTIONS (3)
  - COAGULOPATHY [None]
  - HAEMORRHAGE [None]
  - THROMBOCYTOPENIA [None]
